FAERS Safety Report 9672322 (Version 1)
Quarter: 2013Q4

REPORT INFORMATION
  Report Type: Spontaneous
  Country: FR (occurrence: FR)
  Receive Date: 20131106
  Receipt Date: 20131106
  Transmission Date: 20140711
  Serious: Yes (Hospitalization)
  Sender: FDA-Public Use
  Company Number: FR-TEVA-441070ISR

PATIENT
  Age: 65 Year
  Sex: Female

DRUGS (19)
  1. OXALIPLATINE TEVA [Suspect]
     Indication: ADENOCARCINOMA OF COLON
     Route: 041
     Dates: start: 20130227, end: 20130227
  2. AVASTIN [Concomitant]
     Indication: ADENOCARCINOMA OF COLON
     Dosage: 6 CURES
     Dates: start: 201106, end: 201108
  3. AVASTIN [Concomitant]
     Dosage: 6 CURES
     Dates: start: 201109, end: 201111
  4. AVASTIN [Concomitant]
     Dosage: 3 CURES
     Dates: start: 201203, end: 201204
  5. AVASTIN [Concomitant]
     Dates: start: 20130130
  6. AVASTIN [Concomitant]
     Route: 041
     Dates: start: 20130227, end: 20130227
  7. ZOPHREN [Concomitant]
     Indication: PREMEDICATION
     Route: 042
     Dates: start: 20130227, end: 20130227
  8. METHYLPREDNISOLONE [Concomitant]
     Indication: PREMEDICATION
     Route: 042
     Dates: start: 20130227, end: 20130227
  9. OXALIPLATIN [Concomitant]
     Dosage: 6 CURES
     Dates: start: 201106, end: 201108
  10. OXALIPLATIN [Concomitant]
     Dosage: 3 CURES
     Dates: start: 201203, end: 201204
  11. OXALIPLATIN [Concomitant]
     Dates: start: 20130130, end: 20130227
  12. OXALIPLATIN [Concomitant]
     Dates: start: 20130315, end: 20130315
  13. 5-FLUOROURACIL [Concomitant]
     Dosage: 6 CURES
     Dates: start: 201106, end: 201108
  14. 5-FLUOROURACIL [Concomitant]
     Dosage: 6 CURES
     Dates: start: 201109, end: 201111
  15. 5-FLUOROURACIL [Concomitant]
     Dosage: 4 CURES
     Dates: start: 201203, end: 201204
  16. 5-FLUOROURACIL [Concomitant]
     Dates: start: 20130130
  17. FOLINIC ACID [Concomitant]
     Dosage: 6 CURES
     Dates: start: 201106, end: 201108
  18. FOLINIC ACID [Concomitant]
     Dosage: 4 CURES
     Dates: start: 201203, end: 201204
  19. FOLINIC ACID [Concomitant]
     Dates: start: 20130130

REACTIONS (3)
  - Chills [Recovered/Resolved]
  - Malaise [Recovered/Resolved]
  - Nausea [Recovered/Resolved]
